FAERS Safety Report 23016215 (Version 1)
Quarter: 2023Q4

REPORT INFORMATION
  Report Type: Spontaneous
  Country: US (occurrence: US)
  Receive Date: 20231002
  Receipt Date: 20231002
  Transmission Date: 20240110
  Serious: No
  Sender: FDA-Public Use
  Company Number: US-HARMONY BIOSCIENCES-2023HMY00351

PATIENT
  Sex: Female

DRUGS (4)
  1. WAKIX [Suspect]
     Active Substance: PITOLISANT HYDROCHLORIDE
     Indication: Somnolence
     Dosage: 8.9 MG, 1X/DAY
     Route: 048
     Dates: start: 20230219, end: 202302
  2. WAKIX [Suspect]
     Active Substance: PITOLISANT HYDROCHLORIDE
     Indication: Narcolepsy
  3. WAKIX [Suspect]
     Active Substance: PITOLISANT HYDROCHLORIDE
     Indication: Somnolence
     Dosage: 17.8 MG, 1X/DAY
     Route: 048
     Dates: start: 20230217
  4. WAKIX [Suspect]
     Active Substance: PITOLISANT HYDROCHLORIDE
     Indication: Narcolepsy

REACTIONS (5)
  - Product dose omission issue [Unknown]
  - Insomnia [Unknown]
  - Drug ineffective [Not Recovered/Not Resolved]
  - Headache [Unknown]
  - Middle insomnia [Unknown]

NARRATIVE: CASE EVENT DATE: 20230101
